FAERS Safety Report 13889771 (Version 1)
Quarter: 2017Q3

REPORT INFORMATION
  Report Type: Spontaneous
  Country: US (occurrence: US)
  Receive Date: 20170822
  Receipt Date: 20170822
  Transmission Date: 20171127
  Serious: No
  Sender: FDA-Public Use
  Company Number: US-ROCHE-1086340

PATIENT
  Age: 71 Year
  Sex: Female

DRUGS (4)
  1. ACTEMRA [Suspect]
     Active Substance: TOCILIZUMAB
     Indication: POLYMYALGIA RHEUMATICA
     Dosage: THRID DOSE: 4 MG/KG (358 MG)
     Route: 065
     Dates: start: 20120618
  2. PREDNISONE. [Concomitant]
     Active Substance: PREDNISONE
  3. BENADRYL [Concomitant]
     Active Substance: DIPHENHYDRAMINE HYDROCHLORIDE
  4. DOXYCYCLINE. [Concomitant]
     Active Substance: DOXYCYCLINE

REACTIONS (9)
  - Oropharyngeal pain [Unknown]
  - Arthralgia [Unknown]
  - Urticaria [Unknown]
  - Lip erythema [Unknown]
  - Lip swelling [Unknown]
  - Swelling face [Unknown]
  - Erythema [Unknown]
  - Bronchitis [Unknown]
  - Peripheral swelling [Unknown]

NARRATIVE: CASE EVENT DATE: 20120622
